FAERS Safety Report 21438270 (Version 2)
Quarter: 2023Q1

REPORT INFORMATION
  Report Type: Spontaneous
  Country: US (occurrence: US)
  Receive Date: 20221011
  Receipt Date: 20230109
  Transmission Date: 20230418
  Serious: No
  Sender: FDA-Public Use
  Company Number: US-Melinta Therapeutics, LLC-US-MLNT-22-00140

PATIENT
  Age: 44 Year
  Sex: Female

DRUGS (17)
  1. KIMYRSA [Suspect]
     Active Substance: ORITAVANCIN DIPHOSPHATE
     Indication: Staphylococcal infection
     Route: 041
     Dates: start: 20220816, end: 20220816
  2. KIMYRSA [Suspect]
     Active Substance: ORITAVANCIN DIPHOSPHATE
     Indication: Injection site infection
     Route: 041
     Dates: start: 20220823, end: 20220823
  3. KIMYRSA [Suspect]
     Active Substance: ORITAVANCIN DIPHOSPHATE
     Indication: Skin infection
     Dosage: ORDERED DOSE: 800 MG OVER 1 HOUR AND 15 MIN (174 ML/250 ML NS)
     Route: 041
     Dates: start: 20220830, end: 20220830
  4. BENADRYL [Suspect]
     Active Substance: DIPHENHYDRAMINE HYDROCHLORIDE
     Indication: Premedication
     Dosage: NOT PROVIDED.
  5. BENADRYL [Suspect]
     Active Substance: DIPHENHYDRAMINE HYDROCHLORIDE
     Dosage: NOT PROVIDED.
     Dates: start: 20220823, end: 20220823
  6. BENADRYL [Suspect]
     Active Substance: DIPHENHYDRAMINE HYDROCHLORIDE
     Dosage: 500 ML OF NORMAL SALINE
     Dates: start: 20220830, end: 20220830
  7. TYLENOL [Suspect]
     Active Substance: ACETAMINOPHEN
     Indication: Premedication
     Dosage: NOT PROVIDED.
  8. TYLENOL [Suspect]
     Active Substance: ACETAMINOPHEN
     Dosage: NOT PROVIDED.
     Dates: start: 20220823, end: 20220823
  9. TYLENOL [Suspect]
     Active Substance: ACETAMINOPHEN
     Dosage: 500 ML OF NORMAL SALINE
     Dates: start: 20220830, end: 20220830
  10. ABRAXANE [Suspect]
     Active Substance: PACLITAXEL
     Indication: Breast cancer
     Dosage: NOT PROVIDED
  11. ZYRTEC [Concomitant]
     Active Substance: CETIRIZINE HYDROCHLORIDE
     Indication: Product used for unknown indication
     Dosage: NOT PROVIDED.
  12. DECADRON [Concomitant]
     Active Substance: DEXAMETHASONE
     Indication: Product used for unknown indication
     Dosage: NOT PROVIDED.
  13. PEPSIN [Concomitant]
     Active Substance: PEPSIN
     Indication: Product used for unknown indication
     Dosage: NOT PROVIDED.
  14. ADVIL [Concomitant]
     Active Substance: IBUPROFEN
     Indication: Product used for unknown indication
     Dosage: NOT PROVIDED.
  15. NAPROXEN [Concomitant]
     Active Substance: NAPROXEN
     Indication: Product used for unknown indication
     Dosage: NOT PROVIDED.
  16. ZYPREXA [Concomitant]
     Active Substance: OLANZAPINE
     Indication: Product used for unknown indication
     Dosage: NOT PROVIDED.
  17. COMPAZINE [Concomitant]
     Active Substance: PROCHLORPERAZINE MALEATE
     Indication: Product used for unknown indication
     Dosage: NOT PROVIDED.

REACTIONS (4)
  - Infusion related reaction [Recovered/Resolved]
  - Multiple use of single-use product [Recovered/Resolved]
  - Incorrect dose administered [Recovered/Resolved]
  - Off label use [Recovered/Resolved]

NARRATIVE: CASE EVENT DATE: 20220816
